FAERS Safety Report 18468991 (Version 1)
Quarter: 2020Q4

REPORT INFORMATION
  Report Type: Spontaneous
  Country: US (occurrence: US)
  Receive Date: 20201105
  Receipt Date: 20201105
  Transmission Date: 20210114
  Serious: Yes (Other)
  Sender: FDA-Public Use
  Company Number: None

PATIENT
  Age: 67 Year
  Sex: Female

DRUGS (1)
  1. GLATIRAMER [Suspect]
     Active Substance: GLATIRAMER
     Indication: MULTIPLE SCLEROSIS
     Dosage: ?          OTHER FREQUENCY:THREE X PER WEEK;?
     Route: 058
     Dates: start: 20200818

REACTIONS (3)
  - Chest pain [None]
  - Myocardial infarction [None]
  - Nausea [None]

NARRATIVE: CASE EVENT DATE: 20201104
